FAERS Safety Report 13737597 (Version 1)
Quarter: 2017Q3

REPORT INFORMATION
  Report Type: Spontaneous
  Country: US (occurrence: US)
  Receive Date: 20170710
  Receipt Date: 20170710
  Transmission Date: 20171127
  Serious: No
  Sender: FDA-Public Use
  Company Number: US-SAOL THERAPEUTICS-2016SAO00351

PATIENT
  Age: 58 Year
  Sex: Male
  Weight: 83.9 kg

DRUGS (2)
  1. BACLOFEN. [Suspect]
     Active Substance: BACLOFEN
     Indication: MUSCLE SPASTICITY
     Dosage: 500 ?G, \DAY
     Route: 037
     Dates: start: 2008
  2. BACLOFEN. [Suspect]
     Active Substance: BACLOFEN
     Indication: CEREBRAL PALSY

REACTIONS (3)
  - Drug dose omission [Unknown]
  - Overdose [Recovered/Resolved]
  - Dizziness [Recovered/Resolved]

NARRATIVE: CASE EVENT DATE: 201605
